FAERS Safety Report 4727628-3 (Version None)
Quarter: 2005Q3

REPORT INFORMATION
  Report Type: 
  Country: None (occurrence: None)
  Receive Date: 20050727
  Receipt Date: 20050727
  Transmission Date: 20060218
  Serious: Yes (Hospitalization)
  Sender: FDA-Public Use
  Company Number: None

PATIENT
  Age: 53 Year
  Sex: Male

DRUGS (10)
  1. ETODOLAC [Suspect]
     Indication: PAIN
     Dosage: 400MG PO QD
     Route: 048
     Dates: start: 20050517, end: 20050628
  2. RAMIPRIL [Suspect]
     Indication: HYPERTENSION
     Dosage: 5MG PO QD
     Route: 048
     Dates: start: 20050420, end: 20050628
  3. ETODOLAC [Concomitant]
  4. METHOCARBAMOL [Concomitant]
  5. GEMFIBROZIL [Concomitant]
  6. ALBUTEROL [Concomitant]
  7. ATENOLOL [Concomitant]
  8. HYDROCHLOROTHIAZIDE [Concomitant]
  9. RAMIPRIL [Concomitant]
  10. PREDNISONE [Concomitant]

REACTIONS (2)
  - BLOOD CREATININE INCREASED [None]
  - BLOOD UREA INCREASED [None]
